FAERS Safety Report 19214720 (Version 13)
Quarter: 2024Q3

REPORT INFORMATION
  Report Type: Spontaneous
  Country: CA (occurrence: CA)
  Receive Date: 20210505
  Receipt Date: 20240815
  Transmission Date: 20241016
  Serious: Yes (Life-Threatening, Hospitalization, Other)
  Sender: AUROBINDO
  Company Number: CA-MLMSERVICE-20210421-2849552-1

PATIENT
  Age: 47 Year
  Sex: Female

DRUGS (90)
  1. CYCLOBENZAPRINE [Interacting]
     Active Substance: CYCLOBENZAPRINE
     Indication: Pain
     Dosage: 10 MILLIGRAM, TWO TIMES A DAY
     Route: 048
  2. CYCLOBENZAPRINE [Interacting]
     Active Substance: CYCLOBENZAPRINE
     Indication: Scoliosis
     Dosage: 10 MILLIGRAM, 3 TIMES A DAY
     Route: 048
  3. CYCLOBENZAPRINE [Interacting]
     Active Substance: CYCLOBENZAPRINE
     Dosage: 50 MILLIEQUIVALENT, TWO TIMES A DAY
     Route: 048
  4. CYCLOBENZAPRINE [Interacting]
     Active Substance: CYCLOBENZAPRINE
     Dosage: 10 MILLIGRAM
     Route: 048
  5. FLUOXETINE [Interacting]
     Active Substance: FLUOXETINE HYDROCHLORIDE
     Indication: Major depression
     Dosage: 20 MILLIGRAM, ONCE A DAY
     Route: 048
  6. FLUOXETINE [Interacting]
     Active Substance: FLUOXETINE HYDROCHLORIDE
     Dosage: 60 MILLIGRAM, ONCE A DAY
     Route: 048
  7. FLUOXETINE [Interacting]
     Active Substance: FLUOXETINE HYDROCHLORIDE
     Dosage: 80 MILLIGRAM, ONCE A DAY
     Route: 048
  8. FLUOXETINE [Interacting]
     Active Substance: FLUOXETINE HYDROCHLORIDE
     Dosage: 40 MILLIGRAM, ONCE A DAY
     Route: 048
  9. FLUOXETINE [Interacting]
     Active Substance: FLUOXETINE HYDROCHLORIDE
     Dosage: 80 MILLIGRAM
     Route: 048
  10. FLUOXETINE [Interacting]
     Active Substance: FLUOXETINE HYDROCHLORIDE
     Dosage: UNK
     Route: 048
  11. FLUOXETINE [Interacting]
     Active Substance: FLUOXETINE HYDROCHLORIDE
     Dosage: 80 MILLIGRAM, ONCE A DAY
     Route: 048
  12. FLUOXETINE [Interacting]
     Active Substance: FLUOXETINE HYDROCHLORIDE
     Dosage: 20 MILLIGRAM
     Route: 048
  13. FLUOXETINE [Suspect]
     Active Substance: FLUOXETINE HYDROCHLORIDE
     Indication: Major depression
     Dosage: 40 MILLIGRAM, ONCE A DAY
     Route: 048
  14. FLUOXETINE [Suspect]
     Active Substance: FLUOXETINE HYDROCHLORIDE
     Dosage: 80 MILLIGRAM, ONCE A DAY
     Route: 048
  15. FLUOXETINE [Suspect]
     Active Substance: FLUOXETINE HYDROCHLORIDE
     Dosage: 60 MILLIGRAM, ONCE A DAY
     Route: 048
  16. FLUOXETINE [Suspect]
     Active Substance: FLUOXETINE HYDROCHLORIDE
     Dosage: 20 MILLIGRAM, ONCE A DAY
     Route: 048
  17. FUROSEMIDE [Suspect]
     Active Substance: FUROSEMIDE
     Indication: Oedema peripheral
     Dosage: 40 MILLIGRAM
     Route: 048
  18. GABAPENTIN [Interacting]
     Active Substance: GABAPENTIN
     Indication: Pain
     Dosage: 600 MILLIGRAM, 3 TIMES A DAY
     Route: 048
  19. GABAPENTIN [Interacting]
     Active Substance: GABAPENTIN
     Indication: Scoliosis
     Dosage: 600 MILLIGRAM, FOUR TIMES/DAY
     Route: 048
  20. GABAPENTIN [Interacting]
     Active Substance: GABAPENTIN
     Dosage: 400 MILLIGRAM, FOUR TIMES/DAY
     Route: 065
  21. GABAPENTIN [Interacting]
     Active Substance: GABAPENTIN
     Dosage: 600 MILLIGRAM
     Route: 065
  22. GABAPENTIN [Interacting]
     Active Substance: GABAPENTIN
     Dosage: UNK
     Route: 065
  23. QUETIAPINE [Interacting]
     Active Substance: QUETIAPINE
     Indication: Major depression
     Dosage: 25 TO 50 MG IMMEDIATE-RELEASE 4 TIMES DAILY AS NEEDED
     Route: 065
  24. QUETIAPINE [Interacting]
     Active Substance: QUETIAPINE
     Dosage: 100 MILLIGRAM, ONCE A DAY (EXTENDED-RELEASE AT BEDTIME)
     Route: 048
  25. QUETIAPINE [Interacting]
     Active Substance: QUETIAPINE
     Dosage: 50 MILLIGRAM, FOUR TIMES/DAY
     Route: 065
  26. QUETIAPINE [Interacting]
     Active Substance: QUETIAPINE
     Dosage: UNK
     Route: 065
  27. QUETIAPINE [Suspect]
     Active Substance: QUETIAPINE
     Indication: Major depression
     Dosage: 100 MILLIGRAM, ONCE A DAY
     Route: 048
  28. QUETIAPINE [Suspect]
     Active Substance: QUETIAPINE
     Dosage: 50 MILLIGRAM, FOUR TIMES/DAY
     Route: 048
  29. QUETIAPINE [Suspect]
     Active Substance: QUETIAPINE
     Dosage: 100 MILLIGRAM
     Route: 048
  30. DOXEPIN [Suspect]
     Active Substance: DOXEPIN
     Indication: Major depression
     Dosage: 100 MILLIGRAM
     Route: 048
  31. DOXEPIN [Suspect]
     Active Substance: DOXEPIN
     Dosage: 50 MILLIGRAM
     Route: 048
  32. DOXEPIN [Suspect]
     Active Substance: DOXEPIN
     Dosage: 150 MILLIGRAM
     Route: 048
  33. DOXEPIN [Suspect]
     Active Substance: DOXEPIN
     Dosage: 150 MILLIGRAM, DAILY
     Route: 048
  34. CLONIDINE [Suspect]
     Active Substance: CLONIDINE
     Indication: Product used for unknown indication
     Dosage: UNK
     Route: 065
  35. DIVALPROEX SODIUM [Interacting]
     Active Substance: DIVALPROEX SODIUM
     Indication: Affective disorder
     Dosage: 250 MILLIGRAM, ONCE A DAY
     Route: 048
  36. DIVALPROEX SODIUM [Interacting]
     Active Substance: DIVALPROEX SODIUM
     Dosage: 500 MILLIGRAM, ONCE A DAY
     Route: 048
  37. DOXEPIN [Interacting]
     Active Substance: DOXEPIN
     Indication: Major depression
     Dosage: 50 MILLIGRAM, ONCE A DAY
     Route: 048
  38. DOXEPIN [Interacting]
     Active Substance: DOXEPIN
     Dosage: 100 MILLIGRAM, ONCE A DAY
     Route: 048
  39. DOXEPIN [Interacting]
     Active Substance: DOXEPIN
     Dosage: 150 MILLIGRAM, ONCE A DAY
     Route: 048
  40. DOXEPIN [Interacting]
     Active Substance: DOXEPIN
     Dosage: UNK
     Route: 065
  41. LORAZEPAM [Interacting]
     Active Substance: LORAZEPAM
     Indication: Withdrawal syndrome
     Dosage: 1 TO 2 MG PO 4 TIMES DAILY AS NEEDED
     Route: 048
  42. LORAZEPAM [Interacting]
     Active Substance: LORAZEPAM
     Indication: Anxiety
     Dosage: 2 MILLIGRAM, FOUR TIMES/DAY
     Route: 048
  43. LORAZEPAM [Interacting]
     Active Substance: LORAZEPAM
     Indication: Affective disorder
     Dosage: 1 MILLIGRAM, ONCE A DAY
     Route: 030
  44. LORAZEPAM [Interacting]
     Active Substance: LORAZEPAM
     Dosage: 3 MILLIGRAM
     Route: 065
  45. LORAZEPAM [Interacting]
     Active Substance: LORAZEPAM
     Dosage: 4 MILLIGRAM
     Route: 065
  46. LORAZEPAM [Interacting]
     Active Substance: LORAZEPAM
     Dosage: 6 MILLIGRAM
     Route: 065
  47. LORAZEPAM [Interacting]
     Active Substance: LORAZEPAM
     Dosage: 7 MILLIGRAM
     Route: 065
  48. LORAZEPAM [Interacting]
     Active Substance: LORAZEPAM
     Dosage: 5 MILLIGRAM
     Route: 065
  49. LORAZEPAM [Interacting]
     Active Substance: LORAZEPAM
     Dosage: 2 MILLIGRAM
     Route: 065
  50. LORAZEPAM [Interacting]
     Active Substance: LORAZEPAM
     Dosage: 1 MILLIGRAM
     Route: 048
  51. LORAZEPAM [Interacting]
     Active Substance: LORAZEPAM
     Dosage: UNK
     Route: 048
  52. METHADONE [Interacting]
     Active Substance: METHADONE HYDROCHLORIDE
     Indication: Product used for unknown indication
     Dosage: 75 MILLIGRAM, ONCE A DAY
     Route: 048
  53. METHADONE [Interacting]
     Active Substance: METHADONE HYDROCHLORIDE
     Dosage: 60 MILLIGRAM, ONCE A DAY
     Route: 048
  54. METHADONE [Interacting]
     Active Substance: METHADONE HYDROCHLORIDE
     Dosage: 40 MILLIGRAM
     Route: 065
  55. METHADONE [Interacting]
     Active Substance: METHADONE HYDROCHLORIDE
     Dosage: 50 MILLIGRAM
     Route: 065
  56. METHADONE [Interacting]
     Active Substance: METHADONE HYDROCHLORIDE
     Dosage: 75 MILLIGRAM, ONCE A DAY
     Route: 065
  57. NALOXONE [Suspect]
     Active Substance: NALOXONE
     Indication: Pain
     Dosage: UNK
     Route: 065
  58. QUETIAPINE [Suspect]
     Active Substance: QUETIAPINE
     Indication: Major depression
     Dosage: 100 MILLIGRAM, ONCE A DAY (25 TO 50 MG IMMEDIATE-RELEASE 4 TIMES DAILY AS NEEDED)
     Route: 048
  59. RISPERDAL [Interacting]
     Active Substance: RISPERIDONE
     Indication: Affective disorder
     Dosage: 1 MILLIGRAM, ONCE A DAY
     Route: 048
  60. RISPERDAL [Interacting]
     Active Substance: RISPERIDONE
     Dosage: 0.25 MILLIGRAM, ONCE A DAY
     Route: 048
  61. RISPERIDONE [Interacting]
     Active Substance: RISPERIDONE
     Indication: Affective disorder
     Dosage: 1 MILLIGRAM, ONCE A DAY
     Route: 048
  62. RISPERIDONE [Interacting]
     Active Substance: RISPERIDONE
     Indication: Affective disorder
     Dosage: 0.25 MILLIGRAM
     Route: 048
  63. VALPROATE [Interacting]
     Active Substance: VALPROIC ACID
     Indication: Affective disorder
     Dosage: UNK
     Route: 048
  64. VALPROATE [Interacting]
     Active Substance: VALPROIC ACID
     Indication: Mania
     Dosage: 750 MILLIGRAM, ONCE A DAY
     Route: 048
  65. VALPROATE [Interacting]
     Active Substance: VALPROIC ACID
     Dosage: 500 MILLIGRAM, ONCE A DAY
     Route: 048
  66. VALPROATE [Interacting]
     Active Substance: VALPROIC ACID
     Dosage: 250 MILLIGRAM, ONCE A DAY
     Route: 048
  67. VALPROATE [Interacting]
     Active Substance: VALPROIC ACID
     Dosage: 250 MILLIGRAM
     Route: 048
  68. VALPROATE [Interacting]
     Active Substance: VALPROIC ACID
     Dosage: 500 MILLIGRAM
     Route: 048
  69. VALPROATE [Suspect]
     Active Substance: VALPROIC ACID
     Indication: Affective disorder
     Dosage: 500 MILLIGRAM, ONCE A DAY
     Route: 048
  70. VALPROATE [Suspect]
     Active Substance: VALPROIC ACID
     Dosage: 750 MILLIGRAM, ONCE A DAY
     Route: 048
  71. VALPROATE [Suspect]
     Active Substance: VALPROIC ACID
     Dosage: 250 MILLIGRAM, ONCE A DAY
     Route: 048
  72. DIVALPROEX SODIUM [Suspect]
     Active Substance: DIVALPROEX SODIUM
     Indication: Affective disorder
     Dosage: 500 MILLIGRAM
     Route: 048
  73. DIVALPROEX SODIUM [Suspect]
     Active Substance: DIVALPROEX SODIUM
     Indication: Mania
  74. DIVALPROEX SODIUM [Concomitant]
     Active Substance: DIVALPROEX SODIUM
     Indication: Product used for unknown indication
     Dosage: 250 MILLIGRAM, ONCE A DAY
     Route: 065
  75. DIVALPROEX SODIUM [Concomitant]
     Active Substance: DIVALPROEX SODIUM
     Dosage: 500 MILLIGRAM, ONCE A DAY
     Route: 065
  76. ATENOLOL [Concomitant]
     Active Substance: ATENOLOL
     Indication: Hypertension
     Dosage: 50 MILLIGRAM, ONCE A DAY
     Route: 048
  77. CYCLOBENZAPRINE [Interacting]
     Active Substance: CYCLOBENZAPRINE
     Indication: Product used for unknown indication
     Dosage: UNK
     Route: 065
  78. ESTRADIOL [Concomitant]
     Active Substance: ESTRADIOL
     Indication: Endometriosis
     Dosage: 0.5 MILLIGRAM, ONCE A DAY
     Route: 048
  79. FUROSEMIDE [Concomitant]
     Active Substance: FUROSEMIDE
     Indication: Oedema peripheral
     Dosage: 40 MILLIGRAM, ONCE A DAY
     Route: 048
  80. GABAPENTIN [Concomitant]
     Active Substance: GABAPENTIN
     Indication: Product used for unknown indication
     Dosage: UNK
     Route: 065
  81. LORAZEPAM [Concomitant]
     Active Substance: LORAZEPAM
     Indication: Product used for unknown indication
     Dosage: UNK
     Route: 065
  82. METHADONE [Concomitant]
     Active Substance: METHADONE HYDROCHLORIDE
     Indication: Product used for unknown indication
     Dosage: UNK
     Route: 065
  83. NAPROXEN [Concomitant]
     Active Substance: NAPROXEN
     Indication: Pain
     Dosage: 500 MILLIGRAM, TWO TIMES A DAY
     Route: 048
  84. NAPROXEN [Concomitant]
     Active Substance: NAPROXEN
     Indication: Scoliosis
     Dosage: 5 MICROGRAM, ONCE A DAY
  85. NAPROXEN [Concomitant]
     Active Substance: NAPROXEN
     Dosage: 500 MILLIGRAM, 1 EVERY 5 DAYS
     Route: 048
  86. ALBUTEROL [Concomitant]
     Active Substance: ALBUTEROL
     Indication: Chronic obstructive pulmonary disease
     Dosage: 200 MICROGRAM, TWO TIMES A DAY
     Route: 055
  87. ALBUTEROL [Concomitant]
     Active Substance: ALBUTEROL
     Dosage: 200 MICROGRAM
     Route: 065
  88. ALBUTEROL [Concomitant]
     Active Substance: ALBUTEROL
     Dosage: 200 MICROGRAM
  89. SPIRIVA [Concomitant]
     Active Substance: TIOTROPIUM BROMIDE MONOHYDRATE
     Indication: Chronic obstructive pulmonary disease
     Dosage: 5 MICROGRAM, ONCE A DAY
     Route: 055
  90. TIOTROPIUM BROMIDE [Concomitant]
     Active Substance: TIOTROPIUM BROMIDE
     Indication: Chronic obstructive pulmonary disease
     Dosage: 5 MICROGRAM, ONCE A DAY

REACTIONS (7)
  - Depressed level of consciousness [Recovering/Resolving]
  - Respiratory depression [Recovering/Resolving]
  - Toxicity to various agents [Recovering/Resolving]
  - Drug interaction [Recovering/Resolving]
  - Multiple drug therapy [Recovering/Resolving]
  - Mania [Recovering/Resolving]
  - Off label use [Recovering/Resolving]
